FAERS Safety Report 20917525 (Version 1)
Quarter: 2022Q2

REPORT INFORMATION
  Report Type: Spontaneous
  Country: US (occurrence: US)
  Receive Date: 20220606
  Receipt Date: 20220606
  Transmission Date: 20220721
  Serious: Yes (Hospitalization, Other)
  Sender: FDA-Public Use
  Company Number: US-SANOFI-01125419

PATIENT
  Age: 51 Year
  Sex: Male

DRUGS (4)
  1. LANTUS SOLOSTAR [Suspect]
     Active Substance: INSULIN GLARGINE
     Indication: Type 2 diabetes mellitus
     Dosage: 25 U, QD
     Dates: start: 2012
  2. LANTUS SOLOSTAR [Suspect]
     Active Substance: INSULIN GLARGINE
     Dosage: 30 U, QD
  3. NOVOLOG [Concomitant]
     Active Substance: INSULIN ASPART
     Dosage: 15 UNITS OF NOVOLOG IN THE AFTERNOON.
  4. NOVOLOG [Concomitant]
     Active Substance: INSULIN ASPART
     Dosage: NOW HE INJECTS 8 UNITS OF NOVOLOG BEFORE MEALS BUT IF HIS GLUCOSE IS UNDER 100, THEN HE DOESN^T INJE

REACTIONS (3)
  - Sepsis [Recovering/Resolving]
  - Cystitis [Recovering/Resolving]
  - Blood glucose increased [Recovering/Resolving]

NARRATIVE: CASE EVENT DATE: 20220201
